FAERS Safety Report 22058953 (Version 2)
Quarter: 2023Q1

REPORT INFORMATION
  Report Type: Spontaneous
  Country: JP (occurrence: JP)
  Receive Date: 20230303
  Receipt Date: 20230315
  Transmission Date: 20230417
  Serious: Yes (Other)
  Sender: FDA-Public Use
  Company Number: JP-PFIZERUPJ-2023M1019927AA

PATIENT
  Age: 78 Year
  Sex: Female
  Weight: 36 kg

DRUGS (1)
  1. AMLODIPINE BESYLATE [Suspect]
     Active Substance: AMLODIPINE BESYLATE
     Indication: Essential hypertension
     Dosage: UNK
     Route: 065

REACTIONS (3)
  - Enterocolitis [Recovering/Resolving]
  - Orthostatic hypotension [Unknown]
  - Volume blood decreased [Unknown]
